FAERS Safety Report 12728988 (Version 1)
Quarter: 2016Q3

REPORT INFORMATION
  Report Type: Spontaneous
  Country: US (occurrence: US)
  Receive Date: 20160908
  Receipt Date: 20160908
  Transmission Date: 20161109
  Serious: No
  Sender: FDA-Public Use
  Company Number: None

PATIENT
  Age: 48 Year
  Sex: Female
  Weight: 54 kg

DRUGS (1)
  1. SKIN LIGHTENING ACCELERATOR PACK [Suspect]
     Active Substance: HYDROQUINONE
     Indication: SKIN DISCOLOURATION
     Route: 061
     Dates: start: 20160905, end: 20160906

REACTIONS (6)
  - Irritability [None]
  - Erythema [None]
  - Pruritus [None]
  - Blister [None]
  - Swelling face [None]
  - Burning sensation [None]

NARRATIVE: CASE EVENT DATE: 20160906
